FAERS Safety Report 11210961 (Version 12)
Quarter: 2022Q4

REPORT INFORMATION
  Report Type: Spontaneous
  Country: US (occurrence: US)
  Receive Date: 20150623
  Receipt Date: 20221130
  Transmission Date: 20230113
  Serious: No
  Sender: FDA-Public Use
  Company Number: US-BIOMARINAP-US-2015-106664

PATIENT

DRUGS (9)
  1. ALDURAZYME [Suspect]
     Active Substance: LARONIDASE
     Indication: Mucopolysaccharidosis I
     Dosage: 40.6 MG,QW
     Route: 042
  2. ALDURAZYME [Suspect]
     Active Substance: LARONIDASE
     Dosage: 55.1 MG, QW
     Route: 042
     Dates: start: 20100318
  3. ALDURAZYME [Suspect]
     Active Substance: LARONIDASE
     Dosage: 56 MG, QOW
     Route: 042
     Dates: start: 20190405
  4. ALDURAZYME [Suspect]
     Active Substance: LARONIDASE
     Dosage: 58 MG, QW
     Route: 042
     Dates: start: 2019
  5. ALDURAZYME [Suspect]
     Active Substance: LARONIDASE
     Dosage: 56 MG, QOW
     Route: 042
     Dates: start: 202112
  6. ALDURAZYME [Suspect]
     Active Substance: LARONIDASE
     Dosage: 56 MG, QOW
     Route: 042
  7. LIDOCAINE [Concomitant]
     Active Substance: LIDOCAINE
     Indication: Application site hypoaesthesia
     Dosage: UNK
  8. TYLENOL [Concomitant]
     Active Substance: ACETAMINOPHEN
     Indication: Pain
     Dosage: 500 MG, UNK
  9. TYLENOL [Concomitant]
     Active Substance: ACETAMINOPHEN
     Indication: Premedication

REACTIONS (10)
  - Epistaxis [Unknown]
  - Weight increased [Unknown]
  - Visual impairment [Unknown]
  - Increased tendency to bruise [Unknown]
  - Headache [Unknown]
  - Infusion site swelling [Recovering/Resolving]
  - Infusion site extravasation [Recovered/Resolved]
  - Infusion site extravasation [Unknown]
  - Exposure during pregnancy [Unknown]
  - Inappropriate schedule of product administration [Unknown]

NARRATIVE: CASE EVENT DATE: 20150615
